FAERS Safety Report 6649114-6 (Version None)
Quarter: 2010Q1

REPORT INFORMATION
  Report Type: 
  Country: None (occurrence: None)
  Receive Date: 20100324
  Receipt Date: 20100312
  Transmission Date: 20100710
  Serious: Yes (Other)
  Sender: FDA-Public Use
  Company Number: US-JNJFOC-20100104674

PATIENT
  Age: 83 Year
  Sex: Male
  Weight: 97.52 kg

DRUGS (5)
  1. TYLENOL [Suspect]
     Indication: PAIN
     Route: 048
  2. TYLENOL [Suspect]
     Indication: INTERVERTEBRAL DISC PROTRUSION
     Route: 048
  3. TYLENOL [Suspect]
     Indication: ARTHRITIS
     Route: 048
  4. BANALG [Concomitant]
     Indication: ARTHRITIS
  5. TERAZOL 1 [Concomitant]
     Indication: BLOOD PRESSURE ABNORMAL

REACTIONS (3)
  - BLOOD URINE PRESENT [None]
  - DIARRHOEA [None]
  - PRODUCT QUALITY ISSUE [None]
